FAERS Safety Report 19273061 (Version 1)
Quarter: 2021Q2

REPORT INFORMATION
  Report Type: Spontaneous
  Country: US (occurrence: US)
  Receive Date: 20210518
  Receipt Date: 20210518
  Transmission Date: 20210717
  Serious: Yes (Other)
  Sender: FDA-Public Use
  Company Number: US-JNJFOC-20210519494

PATIENT
  Sex: Female

DRUGS (1)
  1. BALVERSA [Suspect]
     Active Substance: ERDAFITINIB
     Indication: PRODUCT USED FOR UNKNOWN INDICATION
     Dosage: TAKE 2 4MG TABLETS ONCE DAILY
     Route: 048
     Dates: start: 20210108

REACTIONS (2)
  - Tumour marker increased [Unknown]
  - Drug intolerance [Unknown]
